FAERS Safety Report 21264816 (Version 1)
Quarter: 2022Q3

REPORT INFORMATION
  Report Type: Spontaneous
  Country: US (occurrence: US)
  Receive Date: 20220829
  Receipt Date: 20220829
  Transmission Date: 20221026
  Serious: Yes (Hospitalization)
  Sender: FDA-Public Use
  Company Number: US-GE HEALTHCARE-2022CSU005935

PATIENT
  Age: 26 Year
  Sex: Female
  Weight: 59.9 kg

DRUGS (4)
  1. OMNIPAQUE [Suspect]
     Active Substance: IOHEXOL
     Indication: Computerised tomogram abdomen
     Dosage: 93 ML, SINGLE
     Route: 042
     Dates: start: 20220819, end: 20220819
  2. OMNIPAQUE [Suspect]
     Active Substance: IOHEXOL
     Indication: Abdominal pain lower
  3. OMNIPAQUE [Suspect]
     Active Substance: IOHEXOL
     Indication: Nausea
  4. OMNIPAQUE [Suspect]
     Active Substance: IOHEXOL
     Indication: Back pain

REACTIONS (3)
  - Dysphagia [Recovered/Resolved]
  - Dyspnoea [Recovered/Resolved]
  - Syncope [Recovered/Resolved]

NARRATIVE: CASE EVENT DATE: 20220819
